FAERS Safety Report 19506333 (Version 5)
Quarter: 2021Q3

REPORT INFORMATION
  Report Type: Spontaneous
  Country: US (occurrence: US)
  Receive Date: 20210708
  Receipt Date: 20210802
  Transmission Date: 20211014
  Serious: Yes (Other)
  Sender: FDA-Public Use
  Company Number: US-ORGANON-O2106USA002484

PATIENT
  Age: 18 Year
  Sex: Female
  Weight: 130.61 kg

DRUGS (3)
  1. NEXPLANON [Suspect]
     Active Substance: ETONOGESTREL
     Indication: CONTRACEPTION
     Dosage: 1 IMPLANT IN LEFT UPPER ARM
     Dates: start: 20210715
  2. IBUPROFEN. [Concomitant]
     Active Substance: IBUPROFEN
     Dosage: UNK
  3. NEXPLANON [Suspect]
     Active Substance: ETONOGESTREL
     Indication: CONTRACEPTION
     Dosage: 68 MG EVERY 3 YEARS
     Route: 023
     Dates: start: 20201015, end: 20210715

REACTIONS (6)
  - Heavy menstrual bleeding [Recovered/Resolved]
  - Mood altered [Not Recovered/Not Resolved]
  - Incorrect route of product administration [Unknown]
  - Device breakage [Recovered/Resolved]
  - Hormone level abnormal [Unknown]
  - Intermenstrual bleeding [Not Recovered/Not Resolved]

NARRATIVE: CASE EVENT DATE: 20201015
